FAERS Safety Report 8609698-5 (Version None)
Quarter: 2012Q3

REPORT INFORMATION
  Report Type: 
  Country: None (occurrence: None)
  Receive Date: 20120821
  Receipt Date: 20120816
  Transmission Date: 20120928
  Serious: Yes (Other)
  Sender: FDA-Public Use
  Company Number: GB-JNJFOC-20120809188

PATIENT
  Sex: Male

DRUGS (2)
  1. SIMPONI [Suspect]
     Route: 058
  2. SIMPONI [Suspect]
     Indication: PRODUCT USED FOR UNKNOWN INDICATION
     Route: 058
     Dates: start: 20120717

REACTIONS (3)
  - DIZZINESS [None]
  - DIARRHOEA [None]
  - ENDOCRINE NEOPLASM [None]
